FAERS Safety Report 5244909-8 (Version None)
Quarter: 2007Q1

REPORT INFORMATION
  Report Type: 
  Country: None (occurrence: None)
  Receive Date: 20070221
  Receipt Date: 20070221
  Transmission Date: 20070707
  Serious: Yes (Life-Threatening, Hospitalization, Disabling)
  Sender: FDA-Public Use
  Company Number: None

PATIENT

DRUGS (2)
  1. D-STAT INJECTABLE UNKNOWN. IT WASN'T CHARTED, ONLY AS ^GIVEN^ [Suspect]
     Indication: ASPIRATION BIOPSY
     Dates: start: 20070215
  2. D-STAT INJECTABLE UNKNOWN. IT WASN'T CHARTED, ONLY AS ^GIVEN^ [Suspect]
     Indication: POST PROCEDURAL HAEMORRHAGE
     Dates: start: 20070215

REACTIONS (4)
  - IATROGENIC INJURY [None]
  - INCORRECT ROUTE OF DRUG ADMINISTRATION [None]
  - INTESTINAL GANGRENE [None]
  - INTESTINAL INFARCTION [None]
